FAERS Safety Report 5342974-0 (Version None)
Quarter: 2007Q2

REPORT INFORMATION
  Report Type: 
  Country: None (occurrence: None)
  Receive Date: 20070416
  Receipt Date: 20070221
  Transmission Date: 20071010
  Serious: No
  Sender: FDA-Public Use
  Company Number: 2007SP000541

PATIENT
  Age: 46 Year
  Sex: Female
  Weight: 62.1428 kg

DRUGS (2)
  1. LUNESTA [Suspect]
     Indication: INSOMNIA
     Dosage: 3 MG; HS; ORAL
     Route: 048
     Dates: start: 20070206
  2. THERAFLU /USA/ [Concomitant]

REACTIONS (1)
  - DYSGEUSIA [None]
